FAERS Safety Report 16181311 (Version 4)
Quarter: 2020Q2

REPORT INFORMATION
  Report Type: Report from Study
  Country: US (occurrence: US)
  Receive Date: 20190410
  Receipt Date: 20200624
  Transmission Date: 20200713
  Serious: Yes (Other)
  Sender: FDA-Public Use
  Company Number: US-INCYTE CORPORATION-2019IN003515

PATIENT

DRUGS (7)
  1. CARVEDILOL. [Concomitant]
     Active Substance: CARVEDILOL
     Indication: PRODUCT USED FOR UNKNOWN INDICATION
     Route: 065
  2. JAKAFI [Suspect]
     Active Substance: RUXOLITINIB
     Dosage: 10 MILLIGRAM, BID
     Route: 048
  3. BABY ASPIRIN [Suspect]
     Active Substance: ASPIRIN
     Indication: PRODUCT USED FOR UNKNOWN INDICATION
     Dosage: UNK
     Route: 065
  4. BABY ASPIRIN [Suspect]
     Active Substance: ASPIRIN
     Dosage: HALF TABLET TWICE DAILY
     Route: 065
  5. JAKAFI [Suspect]
     Active Substance: RUXOLITINIB
     Dosage: 5 MG QAM (1/2 10 MG TAB), 15 MG QPM (1 1/2 10 MG TAB)
     Route: 048
  6. JAKAFI [Suspect]
     Active Substance: RUXOLITINIB
     Indication: POLYCYTHAEMIA VERA
     Dosage: 15 MG, BID
     Route: 048
     Dates: start: 20171218
  7. JAKAFI [Suspect]
     Active Substance: RUXOLITINIB
     Dosage: 7.5 MG, UNK (HALF OF 15 MG TABLET)
     Route: 048

REACTIONS (12)
  - Memory impairment [Unknown]
  - Facial pain [Unknown]
  - Pain [Unknown]
  - Paraesthesia [Unknown]
  - Skin exfoliation [Not Recovered/Not Resolved]
  - Skin burning sensation [Unknown]
  - Pruritus [Unknown]
  - Haemorrhagic diathesis [Unknown]
  - Skin disorder [Recovering/Resolving]
  - Intentional product use issue [Unknown]
  - Sensory disturbance [Unknown]
  - Wrong technique in product usage process [Unknown]
